FAERS Safety Report 6428332-6 (Version None)
Quarter: 2009Q4

REPORT INFORMATION
  Report Type: 
  Country: None (occurrence: None)
  Receive Date: 20091104
  Receipt Date: 20091104
  Transmission Date: 20100525
  Serious: Yes (Death)
  Sender: FDA-Public Use
  Company Number: None

PATIENT
  Age: 81 Year
  Sex: Male

DRUGS (2)
  1. WARFARIN SODIUM [Suspect]
     Indication: ATRIAL FIBRILLATION
     Dates: start: 20020201, end: 20090504
  2. ASPIRIN [Suspect]
     Indication: ATRIAL FIBRILLATION
     Dates: start: 20020923, end: 20090504

REACTIONS (5)
  - CEREBROVASCULAR ACCIDENT [None]
  - DISORIENTATION [None]
  - EYE PAIN [None]
  - HAEMORRHAGE INTRACRANIAL [None]
  - INCORRECT DOSE ADMINISTERED [None]
